FAERS Safety Report 8576256-0 (Version None)
Quarter: 2012Q3

REPORT INFORMATION
  Report Type: 
  Country: None (occurrence: None)
  Receive Date: 20120807
  Receipt Date: 20120801
  Transmission Date: 20120928
  Serious: Yes (Other)
  Sender: FDA-Public Use
  Company Number: PHHY2012MX067616

PATIENT
  Sex: Female

DRUGS (4)
  1. AKSPRI [Suspect]
     Indication: BLOOD GLUCOSE ABNORMAL
     Dosage: 500 MG, UNK
     Dates: start: 20120101
  2. GALVUS [Suspect]
     Indication: BLOOD GLUCOSE INCREASED
     Dosage: 1 DF (50 MG), BID
     Dates: start: 20110701
  3. DIOVAN [Suspect]
     Indication: HYPERTENSION
     Dosage: 2 DF (160 MG), BY DAY
     Dates: start: 20111101
  4. METOPROLOL TARTRATE [Concomitant]
     Indication: HYPERTENSION
     Dosage: 1 DF, BID
     Dates: start: 20111101

REACTIONS (1)
  - UVEITIS [None]
